FAERS Safety Report 6614640-2 (Version None)
Quarter: 2010Q1

REPORT INFORMATION
  Report Type: 
  Country: None (occurrence: None)
  Receive Date: 20100226
  Receipt Date: 20100216
  Transmission Date: 20100710
  Serious: Yes (Hospitalization, Other)
  Sender: FDA-Public Use
  Company Number: 231647J10USA

PATIENT
  Age: 60 Year
  Sex: Female
  Weight: 111 kg

DRUGS (6)
  1. REBIF [Suspect]
     Indication: MULTIPLE SCLEROSIS
     Dosage: 44 MCG, 3 IN 1 WEEKS, SUBCUTANEOUS
     Route: 058
     Dates: start: 20040831
  2. COGENTIN [Concomitant]
  3. KLONOPIN [Concomitant]
  4. ATIVAN [Concomitant]
  5. DEPAKOTE [Concomitant]
  6. ZIPRASIDONE HCL [Concomitant]

REACTIONS (7)
  - CARDIAC FAILURE CONGESTIVE [None]
  - CONVULSION [None]
  - DIALYSIS [None]
  - DIZZINESS [None]
  - MULTIPLE SCLEROSIS RELAPSE [None]
  - RENAL FAILURE [None]
  - VISUAL IMPAIRMENT [None]
